FAERS Safety Report 15536000 (Version 1)
Quarter: 2018Q4

REPORT INFORMATION
  Report Type: Spontaneous
  Country: US (occurrence: US)
  Receive Date: 20181021
  Receipt Date: 20181021
  Transmission Date: 20190205
  Serious: Yes (Hospitalization)
  Sender: FDA-Public Use
  Company Number: None

PATIENT
  Age: 77 Year
  Sex: Female

DRUGS (13)
  1. ELIQUIS [Concomitant]
     Active Substance: APIXABAN
  2. FORTEO [Suspect]
     Active Substance: TERIPARATIDE
     Indication: OSTEOPOROSIS
     Route: 058
     Dates: start: 20180124
  3. RANITIDINE. [Concomitant]
     Active Substance: RANITIDINE
  4. TOLTERODINE [Concomitant]
     Active Substance: TOLTERODINE
  5. METOPROLOL SUCCINATE. [Concomitant]
     Active Substance: METOPROLOL SUCCINATE
  6. AMLODIPINE/BENAZEPRIL [Concomitant]
     Active Substance: AMLODIPINE BESYLATE\BENAZEPRIL HYDROCHLORIDE
  7. MYRBETRIQ [Concomitant]
     Active Substance: MIRABEGRON
  8. TRAMADOL. [Concomitant]
     Active Substance: TRAMADOL
  9. PAROXETINE. [Concomitant]
     Active Substance: PAROXETINE
  10. LYRICA [Concomitant]
     Active Substance: PREGABALIN
  11. VITAMIN D [Concomitant]
     Active Substance: CHOLECALCIFEROL
  12. TIZANIDINE. [Concomitant]
     Active Substance: TIZANIDINE
  13. FLUVASTATIN [Concomitant]
     Active Substance: FLUVASTATIN SODIUM

REACTIONS (2)
  - Urinary tract infection [None]
  - Vomiting [None]

NARRATIVE: CASE EVENT DATE: 20181006
